FAERS Safety Report 13274439 (Version 1)
Quarter: 2017Q1

REPORT INFORMATION
  Report Type: Spontaneous
  Country: US (occurrence: US)
  Receive Date: 20170227
  Receipt Date: 20170227
  Transmission Date: 20170428
  Serious: Yes (Other)
  Sender: FDA-Public Use
  Company Number: US-MYLANLABS-2017M1011057

PATIENT

DRUGS (1)
  1. LORAZEPAM. [Suspect]
     Active Substance: LORAZEPAM
     Indication: ESSENTIAL TREMOR
     Dosage: APPROXIMATE DOSE OF 1MG EVERY 4 TO 6 HOURS WITH AN AVERAGE DAILY INTAKE OF 6MG
     Route: 065

REACTIONS (1)
  - Dementia [Recovering/Resolving]
